FAERS Safety Report 5241455-2 (Version None)
Quarter: 2007Q1

REPORT INFORMATION
  Report Type: 
  Country: None (occurrence: None)
  Receive Date: 20070220
  Receipt Date: 20070123
  Transmission Date: 20070707
  Serious: Yes (Other)
  Sender: FDA-Public Use
  Company Number: IT-AVENTIS-200615075EU

PATIENT
  Age: 52 Year
  Sex: Male

DRUGS (6)
  1. CLEXANE [Suspect]
     Indication: ATRIAL FIBRILLATION
     Route: 058
     Dates: start: 20060828, end: 20060830
  2. CLEXANE [Suspect]
     Route: 058
     Dates: start: 20060901
  3. CLEXANE [Suspect]
     Route: 058
     Dates: start: 20060828, end: 20060830
  4. CLEXANE [Suspect]
     Route: 058
     Dates: start: 20060901
  5. AMIODARONE HCL [Suspect]
     Route: 041
     Dates: start: 20060828, end: 20060830
  6. ESOMEPRAZOLE MAGNESIUM [Concomitant]
     Route: 048

REACTIONS (3)
  - ACTIVATED PARTIAL THROMBOPLASTIN TIME PROLONGED [None]
  - COAGULATION TIME PROLONGED [None]
  - INTERNATIONAL NORMALISED RATIO INCREASED [None]
